FAERS Safety Report 8483775-4 (Version None)
Quarter: 2012Q3

REPORT INFORMATION
  Report Type: 
  Country: None (occurrence: None)
  Receive Date: 20120703
  Receipt Date: 20120626
  Transmission Date: 20120928
  Serious: No
  Sender: FDA-Public Use
  Company Number: US-BIOGENIDEC-2012BI018453

PATIENT
  Sex: Female

DRUGS (1)
  1. TYSABRI [Suspect]
     Indication: MULTIPLE SCLEROSIS
     Route: 042
     Dates: start: 20120521

REACTIONS (9)
  - FEELING ABNORMAL [None]
  - DYSPEPSIA [None]
  - SENSORY DISTURBANCE [None]
  - PARAESTHESIA [None]
  - HYPERSENSITIVITY [None]
  - LETHARGY [None]
  - NAUSEA [None]
  - GAIT DISTURBANCE [None]
  - BACK PAIN [None]
